FAERS Safety Report 7002317-3 (Version None)
Quarter: 2010Q3

REPORT INFORMATION
  Report Type: 
  Country: None (occurrence: None)
  Receive Date: 20100920
  Receipt Date: 20100416
  Transmission Date: 20110219
  Serious: Yes (Hospitalization)
  Sender: FDA-Public Use
  Company Number: US-ASTRAZENECA-2008UW12777

PATIENT
  Age: 18191 Day
  Sex: Female

DRUGS (4)
  1. SEROQUEL [Suspect]
     Dosage: 100 MG TO 600 MG
     Route: 048
     Dates: start: 20000216
  2. LISINOPRIL [Concomitant]
     Dates: start: 20070108
  3. PAXIL [Concomitant]
     Route: 048
     Dates: start: 20050609
  4. TRAZODONE HCL [Concomitant]
     Route: 048
     Dates: start: 20050609

REACTIONS (1)
  - TYPE 2 DIABETES MELLITUS [None]
